FAERS Safety Report 12749752 (Version 1)
Quarter: 2016Q3

REPORT INFORMATION
  Report Type: Spontaneous
  Country: FR (occurrence: FR)
  Receive Date: 20160916
  Receipt Date: 20160916
  Transmission Date: 20161109
  Serious: Yes (Life-Threatening, Other)
  Sender: FDA-Public Use
  Company Number: FR-BAYER-2016-178705

PATIENT
  Age: 74 Year
  Sex: Male

DRUGS (2)
  1. ENOXAPARIN [Suspect]
     Active Substance: ENOXAPARIN
     Dosage: 0.4 ML, QD
  2. ACETYLSALICYLIC ACID({=100 MG) [Suspect]
     Active Substance: ASPIRIN
     Dosage: 100 MG, QD

REACTIONS (5)
  - Splenic infarction [Recovered/Resolved]
  - Ischaemic stroke [Recovered/Resolved]
  - Embolism [Recovered/Resolved]
  - Cardiac valve replacement complication [Recovered/Resolved]
  - Myocardial infarction [Recovered/Resolved]
